FAERS Safety Report 6875048-8 (Version None)
Quarter: 2010Q2

REPORT INFORMATION
  Report Type: 
  Country: None (occurrence: None)
  Receive Date: 20100616
  Receipt Date: 20080729
  Transmission Date: 20101027
  Serious: Yes (Hospitalization)
  Sender: FDA-Public Use
  Company Number: 1000000350

PATIENT
  Age: 83 Year
  Sex: Female

DRUGS (4)
  1. NAMENDA [Suspect]
     Indication: DEMENTIA ALZHEIMER'S TYPE
     Dosage: 5 MG (5 MG,1 IN 1 D),ORAL
     Route: 048
     Dates: start: 20080714, end: 20080720
  2. NAMENDA [Suspect]
     Indication: DEMENTIA ALZHEIMER'S TYPE
     Dosage: 10 MG (5 MG,2 IN 1 D),ORAL
     Route: 048
     Dates: start: 20080721, end: 20080701
  3. INDERAL [Concomitant]
  4. ARICEPT [Concomitant]

REACTIONS (1)
  - DIVERTICULITIS [None]
